FAERS Safety Report 10185689 (Version 2)
Quarter: 2014Q2

REPORT INFORMATION
  Report Type: Report from Study
  Country: TN (occurrence: TN)
  Receive Date: 20140521
  Receipt Date: 20140528
  Transmission Date: 20141212
  Serious: Yes (Death)
  Sender: FDA-Public Use
  Company Number: TN-SA-2014SA062412

PATIENT
  Age: 76 Year
  Sex: Male

DRUGS (5)
  1. PLAVIX [Suspect]
     Indication: ACUTE CORONARY SYNDROME
     Dosage: DOSE: 75 UNITS NOT SPECIFIED
     Route: 048
     Dates: start: 20131203, end: 20140421
  2. ASPIRIN [Concomitant]
     Route: 048
  3. HYPOTEN [Concomitant]
     Route: 048
  4. ENALAPRIL [Concomitant]
     Route: 048
  5. ATOR [Concomitant]
     Route: 048

REACTIONS (1)
  - Cardiogenic shock [Fatal]
